FAERS Safety Report 8975762 (Version 3)
Quarter: 2013Q1

REPORT INFORMATION
  Report Type: Report from Study
  Country: GB (occurrence: GB)
  Receive Date: 20121219
  Receipt Date: 20130222
  Transmission Date: 20140127
  Serious: Yes (Hospitalization)
  Sender: FDA-Public Use
  Company Number: GB-JNJFOC-20121207956

PATIENT
  Age: 74 Year
  Sex: Male
  Weight: 116 kg

DRUGS (20)
  1. RIVAROXABAN [Suspect]
     Indication: ATRIAL FIBRILLATION
     Route: 048
     Dates: start: 20121123, end: 201211
  2. RIVAROXABAN [Suspect]
     Indication: CEREBROVASCULAR ACCIDENT PROPHYLAXIS
     Route: 048
     Dates: start: 20121123, end: 201211
  3. SIMVASTATIN [Concomitant]
     Indication: HYPERCHOLESTEROLAEMIA
     Route: 048
  4. ALLOPURINOL [Concomitant]
     Indication: GOUT
     Route: 048
  5. METFORMIN [Concomitant]
     Indication: DIABETES MELLITUS
     Route: 048
     Dates: start: 2002
  6. OMEPRAZOL [Concomitant]
     Route: 048
  7. SANDO-K [Concomitant]
     Indication: PROPHYLAXIS
     Route: 048
     Dates: start: 20121129, end: 20121129
  8. DIGOXIN [Concomitant]
     Indication: ATRIAL FIBRILLATION
     Route: 048
     Dates: start: 20120830
  9. DIGOXIN [Concomitant]
     Indication: ATRIAL FIBRILLATION
     Route: 048
  10. DIGOXIN [Concomitant]
     Indication: HYPERTENSION
     Route: 048
  11. DIGOXIN [Concomitant]
     Indication: HYPERTENSION
     Route: 048
     Dates: start: 20120830
  12. AMITRIPTYLINE [Concomitant]
     Indication: DEPRESSION
     Route: 048
  13. WARFARIN [Concomitant]
     Indication: ATRIAL FIBRILLATION
     Route: 048
     Dates: start: 201208, end: 20121123
  14. QUINATE [Concomitant]
     Indication: MUSCLE SPASMS
     Route: 048
  15. BISOPROLOL [Concomitant]
     Indication: ATRIAL FIBRILLATION
     Route: 048
     Dates: start: 201208
  16. ACETYLSALICYLIC ACID [Concomitant]
     Indication: ATRIAL FIBRILLATION
     Route: 048
     Dates: end: 20121123
  17. RAMIPRIL [Concomitant]
     Indication: HYPERTENSION
     Route: 048
  18. RAMIPRIL [Concomitant]
     Indication: HYPERTENSION
     Route: 048
  19. RAMIPRIL [Concomitant]
     Indication: HYPERTENSION
     Route: 048
  20. RAMIPRIL [Concomitant]
     Indication: HYPERTENSION
     Route: 048

REACTIONS (1)
  - Diarrhoea [Recovered/Resolved]
